FAERS Safety Report 8811304 (Version 1)
Quarter: 2012Q4

REPORT INFORMATION
  Report Type: Spontaneous
  Country: US (occurrence: None)
  Receive Date: 20120924
  Receipt Date: 20120924
  Transmission Date: 20130627
  Serious: Yes (Hospitalization)
  Sender: FDA-Public Use
  Company Number: ADR-2012-01733

PATIENT
  Sex: Female

DRUGS (2)
  1. BACLOFEN INTRATHECAL (BACLOFEN INJECTION) [Suspect]
  2. BACLOFEN INTRATHECAL (BACLOFEN INJECTION) [Suspect]

REACTIONS (8)
  - Hyperhidrosis [None]
  - Tremor [None]
  - Feeling cold [None]
  - Body temperature decreased [None]
  - Vaginal infection [None]
  - Blood glucose increased [None]
  - Blood pressure increased [None]
  - Hormone level abnormal [None]
